FAERS Safety Report 17171412 (Version 1)
Quarter: 2019Q4

REPORT INFORMATION
  Report Type: Not Available
  Country: CN (occurrence: CN)
  Receive Date: 20191218
  Receipt Date: 20191218
  Transmission Date: 20200122
  Serious: Yes (Hospitalization)
  Sender: FDA-Public Use
  Company Number: CN-ANIPHARMA-2019-CN-000240

PATIENT
  Age: 82 Year
  Sex: Male

DRUGS (5)
  1. BICALUTAMIDE. [Suspect]
     Active Substance: BICALUTAMIDE
     Indication: PROSTATE CANCER
     Dosage: 50 MG DAILY
     Route: 048
     Dates: start: 20181207
  2. ASPIRIN. [Concomitant]
     Active Substance: ASPIRIN
     Dosage: 10 MG DAILY
     Route: 048
     Dates: start: 20190325
  3. GLURENORM [Concomitant]
     Active Substance: GLIQUIDONE
     Dosage: 30 MG DAILY
     Route: 065
     Dates: start: 2007
  4. ZOLADEX [Suspect]
     Active Substance: GOSERELIN ACETATE
     Dosage: 10.8 MG Q3MO
     Route: 058
     Dates: start: 20190401
  5. ADALAT [Concomitant]
     Active Substance: NIFEDIPINE
     Dosage: 30 MG DAILY
     Route: 065
     Dates: start: 2013

REACTIONS (1)
  - Nephrolithiasis [Recovered/Resolved]

NARRATIVE: CASE EVENT DATE: 20181218
